FAERS Safety Report 8257444-X (Version None)
Quarter: 2012Q2

REPORT INFORMATION
  Report Type: 
  Country: None (occurrence: None)
  Receive Date: 20120403
  Receipt Date: 20120328
  Transmission Date: 20120825
  Serious: Yes (Hospitalization, Other)
  Sender: FDA-Public Use
  Company Number: IT-ROCHE-1030417

PATIENT
  Sex: Male
  Weight: 72 kg

DRUGS (5)
  1. COPEGUS [Suspect]
     Indication: HEPATITIS C
     Dosage: LAST DOSE PRIOR TO AE ONSET 14 DEC 2011, LAST RIBAVARIN 400 MG
     Route: 048
  2. RO 5190591 (HCV PROTEASE INHIBITOR) [Suspect]
     Indication: HEPATITIS C
     Dosage: LAST DOSE TAKEN 100 MG,MOST RECENT DOSE PRIOR TO SAE 14 DEC 2011
     Route: 048
     Dates: start: 20110630
  3. RITONAVIR [Suspect]
     Indication: HEPATITIS C
     Dosage: LAST DOSE PRIOR TO AE ONSET 14 DEC 2011, DOSE OF LAST RITONAVIR TAKEN 100 MG
     Route: 048
     Dates: start: 20110630
  4. RO 5024048 (HCV POLYMERASE INHIBITOR) [Suspect]
     Indication: HEPATITIS C
     Dosage: LAST DOSE PRIOR TO AE ONSET 14 DEC 2011, DOSE LAST TAKEN 1000MG
     Route: 048
  5. PEGINTERFERON ALFA-2A [Suspect]
     Indication: HEPATITIS C
     Dosage: LAST DOSE PRIOR TO AE ONSET 08 DEC 2011, LAST DOSE TAKEN 180 MCG
     Route: 058

REACTIONS (1)
  - MYOPATHY TOXIC [None]
